FAERS Safety Report 17633361 (Version 1)
Quarter: 2020Q2

REPORT INFORMATION
  Report Type: Report from Study
  Country: NL (occurrence: NL)
  Receive Date: 20200406
  Receipt Date: 20200406
  Transmission Date: 20200713
  Serious: Yes (Hospitalization, Other)
  Sender: FDA-Public Use
  Company Number: NVSC2019NL080851

PATIENT
  Age: 55 Year
  Sex: Female

DRUGS (1)
  1. SANDOSTATINE LAR [Suspect]
     Active Substance: OCTREOTIDE ACETATE
     Indication: HYPOGLYCAEMIA
     Dosage: 1 DF, Q2W (20 MG / 2 ML)
     Route: 030

REACTIONS (5)
  - Inappropriate schedule of product administration [Unknown]
  - Cyst [Unknown]
  - Product use in unapproved indication [Unknown]
  - Periarthritis [Not Recovered/Not Resolved]
  - Dactylitis [Not Recovered/Not Resolved]

NARRATIVE: CASE EVENT DATE: 20181101
